FAERS Safety Report 13226372 (Version 1)
Quarter: 2017Q1

REPORT INFORMATION
  Report Type: Spontaneous
  Country: FR (occurrence: FR)
  Receive Date: 20170213
  Receipt Date: 20170213
  Transmission Date: 20170428
  Serious: Yes (Hospitalization)
  Sender: FDA-Public Use
  Company Number: FR-PFIZER INC-2017052875

PATIENT
  Age: 34 Year
  Sex: Female

DRUGS (6)
  1. PARACETAMOL [Suspect]
     Active Substance: ACETAMINOPHEN
     Dosage: 7 G, SINGLE
     Route: 048
     Dates: start: 20170125, end: 20170125
  2. LORMETAZEPAM [Suspect]
     Active Substance: LORMETAZEPAM
     Dosage: 13 DF, SINGLE
     Dates: start: 20170125, end: 20170125
  3. XANAX [Suspect]
     Active Substance: ALPRAZOLAM
     Dosage: 6.25 MG, SINGLE
     Dates: start: 20170125, end: 20170125
  4. VOLTARENE [Suspect]
     Active Substance: DICLOFENAC SODIUM
     Dosage: 600 MG, SINGLE
     Dates: start: 20170125, end: 20170125
  5. NOCTAMIDE [Suspect]
     Active Substance: LORMETAZEPAM
     Dosage: 14 MG, SINGLE
     Dates: start: 20170125, end: 20170125
  6. NORSET [Concomitant]
     Active Substance: MIRTAZAPINE
     Dosage: 10 DF, SINGLE
     Dates: start: 20170125, end: 20170125

REACTIONS (3)
  - Toxicity to various agents [Recovered/Resolved]
  - Overdose [Recovered/Resolved]
  - Disturbance in attention [Recovered/Resolved]

NARRATIVE: CASE EVENT DATE: 20170125
